FAERS Safety Report 16597596 (Version 1)
Quarter: 2019Q3

REPORT INFORMATION
  Report Type: Spontaneous
  Country: US (occurrence: US)
  Receive Date: 20190606
  Receipt Date: 20190606
  Transmission Date: 20191004
  Serious: No
  Sender: FDA-Public Use
  Company Number: None

PATIENT
  Age: 72 Year
  Sex: Male
  Weight: 105.69 kg

DRUGS (1)
  1. FORTEO [Suspect]
     Active Substance: TERIPARATIDE
     Indication: OSTEOPOROSIS
     Dosage: OTHER STRENGTH 600 MCG/2.4 ML PEN INJ
     Route: 058
     Dates: start: 201706

REACTIONS (2)
  - Parkinson^s disease [None]
  - Dementia [None]
